FAERS Safety Report 11394444 (Version 1)
Quarter: 2015Q3

REPORT INFORMATION
  Report Type: Report from Study
  Country: US (occurrence: US)
  Receive Date: 20150819
  Receipt Date: 20150819
  Transmission Date: 20151125
  Serious: Yes (Hospitalization)
  Sender: FDA-Public Use
  Company Number: US-BIOGENIDEC-2015BI113006

PATIENT
  Sex: Female
  Weight: 72 kg

DRUGS (14)
  1. TECFIDERA [Suspect]
     Active Substance: DIMETHYL FUMARATE
     Indication: MULTIPLE SCLEROSIS
     Route: 048
     Dates: start: 201401
  2. GABAPENTIN. [Concomitant]
     Active Substance: GABAPENTIN
  3. DIAZEPAM. [Concomitant]
     Active Substance: DIAZEPAM
  4. FLUCONAZOLE. [Concomitant]
     Active Substance: FLUCONAZOLE
  5. HYDROMORPHONE [Concomitant]
     Active Substance: HYDROMORPHONE
  6. FENTANYL. [Concomitant]
     Active Substance: FENTANYL
  7. OXYCODONE HCL [Concomitant]
     Active Substance: OXYCODONE HYDROCHLORIDE
  8. AMPHETAMINE SALT COMBO [Concomitant]
  9. CLINDAMYCIN [Concomitant]
     Active Substance: CLINDAMYCIN\CLINDAMYCIN PHOSPHATE
  10. AMANTADINE [Concomitant]
     Active Substance: AMANTADINE
  11. KETOROLAC TROMETHAMINE. [Concomitant]
     Active Substance: KETOROLAC TROMETHAMINE
  12. LYRICA [Concomitant]
     Active Substance: PREGABALIN
  13. PROMETHAZINE [Concomitant]
     Active Substance: PROMETHAZINE\PROMETHAZINE HYDROCHLORIDE
  14. ALPRAZOLAM. [Concomitant]
     Active Substance: ALPRAZOLAM

REACTIONS (2)
  - Neck pain [Unknown]
  - Headache [Unknown]
